FAERS Safety Report 24142618 (Version 1)
Quarter: 2024Q3

REPORT INFORMATION
  Report Type: Report from Study
  Country: US (occurrence: US)
  Receive Date: 20240726
  Receipt Date: 20240726
  Transmission Date: 20241017
  Serious: Yes (Hospitalization)
  Sender: BAUSCH AND LOMB
  Company Number: US-BAUSCH-BL-2024-008434

PATIENT
  Age: 37 Year
  Sex: Male

DRUGS (1)
  1. XIFAXAN [Suspect]
     Active Substance: RIFAXIMIN
     Indication: Hepatic failure
     Dosage: 1 TABLET BY MOUTH TWICE DAILY IN THE MORNING AND EVENING
     Route: 048
     Dates: end: 20240715

REACTIONS (5)
  - Road traffic accident [Unknown]
  - Malaise [Not Recovered/Not Resolved]
  - Confusional state [Unknown]
  - Therapy interrupted [Unknown]
  - Insurance issue [Unknown]
